FAERS Safety Report 23180816 (Version 3)
Quarter: 2023Q4

REPORT INFORMATION
  Report Type: Spontaneous
  Country: US (occurrence: US)
  Receive Date: 20231114
  Receipt Date: 20231123
  Transmission Date: 20240110
  Serious: No
  Sender: FDA-Public Use
  Company Number: US-Nobelpharma America, LLC-NPA-2023-02147

PATIENT
  Sex: Male

DRUGS (6)
  1. HYFTOR [Suspect]
     Active Substance: SIROLIMUS
     Indication: Tuberous sclerosis complex
     Dosage: APPLY A THIN FILM TO THE AFFECTED AREAS TWICE DAILY
     Dates: start: 20230316
  2. DOCUSATE SODIUM [Concomitant]
     Active Substance: DOCUSATE SODIUM
  3. LACOSAMIDE [Concomitant]
     Active Substance: LACOSAMIDE
  4. LAMOTRIGINE [Concomitant]
     Active Substance: LAMOTRIGINE
  5. MIRALAX [Concomitant]
     Active Substance: POLYETHYLENE GLYCOL 3350
     Dosage: 3350 NF
  6. VIMPAT [Concomitant]
     Active Substance: LACOSAMIDE

REACTIONS (1)
  - Diarrhoea [Unknown]
